FAERS Safety Report 6756335-0 (Version None)
Quarter: 2010Q2

REPORT INFORMATION
  Report Type: 
  Country: None (occurrence: None)
  Receive Date: 20100604
  Receipt Date: 20100603
  Transmission Date: 20101027
  Serious: Yes (Hospitalization)
  Sender: FDA-Public Use
  Company Number: A0862564A

PATIENT
  Age: 64 Year
  Sex: Male

DRUGS (12)
  1. ALLI [Suspect]
     Indication: DRUG USE FOR UNKNOWN INDICATION
     Route: 048
     Dates: start: 20100527, end: 20100601
  2. PROCARDIA XL [Concomitant]
     Dosage: 30MG PER DAY
  3. ALDACTONE [Concomitant]
     Dosage: 25MG PER DAY
  4. ZOCOR [Concomitant]
     Dosage: 40MG PER DAY
  5. COREG [Concomitant]
     Dosage: 3.125MG TWICE PER DAY
     Route: 048
  6. LASIX [Concomitant]
     Dosage: 20MG PER DAY
     Route: 048
  7. PROTONIX [Concomitant]
     Dosage: 40MG PER DAY
     Route: 048
  8. PLAVIX [Concomitant]
     Dosage: 75MG PER DAY
     Route: 048
  9. SEROQUEL [Concomitant]
     Dosage: 300MG PER DAY
  10. LAMICTAL [Concomitant]
     Dosage: 100MG AT NIGHT
     Route: 048
  11. ZESTRIL [Concomitant]
     Dosage: 5MG PER DAY
  12. ATIVAN [Concomitant]
     Dosage: 1MG THREE TIMES PER DAY
     Route: 048

REACTIONS (1)
  - MANIA [None]
